FAERS Safety Report 14251888 (Version 5)
Quarter: 2018Q1

REPORT INFORMATION
  Report Type: Report from Study
  Country: FR (occurrence: FR)
  Receive Date: 20171205
  Receipt Date: 20180110
  Transmission Date: 20180508
  Serious: Yes (Death, Hospitalization, Other)
  Sender: FDA-Public Use
  Company Number: FR-VIIV HEALTHCARE LIMITED-FR2017GSK101133

PATIENT
  Age: 57 Year
  Sex: Male
  Weight: 65 kg

DRUGS (18)
  1. ABACAVIRSULPHATE+DOLUTEGRAVIR+LAMIVUDINE [Suspect]
     Active Substance: ABACAVIR SULFATE\DOLUTEGRAVIR SODIUM\LAMIVUDINE
     Indication: HIV INFECTION
     Dosage: UNK
     Dates: start: 20151015
  2. BUPRENORPHINE. [Concomitant]
     Active Substance: BUPRENORPHINE
     Indication: PAIN
     Dosage: 8 MG, BID
     Route: 048
     Dates: start: 20161120, end: 20161202
  3. MIDAZOLAM [Concomitant]
     Active Substance: MIDAZOLAM HYDROCHLORIDE
     Indication: SEDATION
     Dosage: 500 NG, UNK
     Route: 042
     Dates: start: 20161203, end: 20161203
  4. ALPRAZOLAM. [Concomitant]
     Active Substance: ALPRAZOLAM
     Indication: ANXIETY
     Dosage: 250 UG, QD
     Route: 048
     Dates: start: 20170422, end: 20170422
  5. PARACETAMOL [Concomitant]
     Active Substance: ACETAMINOPHEN
     Indication: PAIN
     Dosage: 1 G, QD
     Route: 042
     Dates: start: 20161203, end: 20161203
  6. MOVICOL [Concomitant]
     Active Substance: POLYETHYLENE GLYCOL 3350\POTASSIUM CHLORIDE\SODIUM BICARBONATE\SODIUM CHLORIDE
     Indication: CONSTIPATION
     Dosage: 1 DF, TID
     Route: 048
     Dates: start: 20161125
  7. SUBUTEX [Concomitant]
     Active Substance: BUPRENORPHINE HYDROCHLORIDE
     Indication: DRUG DEPENDENCE
     Dosage: 8 MG, QD
     Route: 048
     Dates: start: 20161120, end: 20161202
  8. ABACAVIRSULPHATE+DOLUTEGRAVIR+LAMIVUDINE [Suspect]
     Active Substance: ABACAVIR SULFATE\DOLUTEGRAVIR SODIUM\LAMIVUDINE
     Dosage: UNK
     Dates: start: 20151015
  9. BACTRIM [Concomitant]
     Active Substance: SULFAMETHOXAZOLE\TRIMETHOPRIM
     Indication: PROPHYLAXIS
     Dosage: 400 MG, 1D
     Route: 048
     Dates: start: 20161119
  10. MORPHINE [Concomitant]
     Active Substance: MORPHINE
     Indication: PAIN
     Dosage: 200 UG, CO
     Route: 042
     Dates: start: 20161203, end: 20161203
  11. BETNEVAL [Concomitant]
     Active Substance: BETAMETHASONE VALERATE
     Indication: PRURITUS
     Dosage: UNK
     Route: 003
     Dates: start: 20160416, end: 20160502
  12. BUPRENORPHINE. [Concomitant]
     Active Substance: BUPRENORPHINE
     Indication: DRUG DEPENDENCE
     Dosage: 8 UNK, UNK
     Route: 048
     Dates: start: 20160415, end: 20160428
  13. LOVENOX [Concomitant]
     Active Substance: ENOXAPARIN SODIUM
     Indication: PHLEBITIS
     Dosage: UNK
     Route: 058
     Dates: start: 20160415, end: 20160502
  14. SPECIAFOLDINE [Concomitant]
     Active Substance: FOLIC ACID
     Indication: FOLATE DEFICIENCY
     Dosage: 5 MG, 1D
     Route: 048
     Dates: start: 20160419, end: 20160503
  15. TERCIAN [Concomitant]
     Active Substance: CYAMEMAZINE
     Indication: ANXIETY DISORDER
     Dosage: 25 MG, 1D
     Route: 048
     Dates: start: 20160421, end: 20160421
  16. VITAMIN K1 [Concomitant]
     Active Substance: PHYTONADIONE
     Indication: HYPOVITAMINOSIS
     Dosage: 10 MG, SINGLE
     Route: 048
     Dates: start: 20161121, end: 20161121
  17. MIDAZOLAM [Concomitant]
     Active Substance: MIDAZOLAM HYDROCHLORIDE
     Dosage: 200 NG, CO
     Route: 042
     Dates: start: 20161203, end: 20161203
  18. BACTRIM [Concomitant]
     Active Substance: SULFAMETHOXAZOLE\TRIMETHOPRIM
     Indication: PROPHYLAXIS
     Dosage: 400 MG, QD
     Dates: start: 20161119, end: 20161119

REACTIONS (18)
  - Acute kidney injury [Fatal]
  - Skin candida [Recovering/Resolving]
  - Genital herpes [Recovered/Resolved]
  - Genital herpes [Recovering/Resolving]
  - Oropharyngeal candidiasis [Unknown]
  - Pancytopenia [Not Recovered/Not Resolved]
  - Metabolic acidosis [Fatal]
  - Normocytic anaemia [Not Recovered/Not Resolved]
  - Weight decreased [Recovering/Resolving]
  - General physical condition abnormal [Fatal]
  - Dehydration [Recovered/Resolved]
  - Feeding disorder [Recovered/Resolved]
  - Prurigo [Recovering/Resolving]
  - Dyspnoea [Unknown]
  - Thrombocytopenia [Fatal]
  - Decreased appetite [Fatal]
  - Eczema [Not Recovered/Not Resolved]
  - Eczema [Recovering/Resolving]

NARRATIVE: CASE EVENT DATE: 20150903
